FAERS Safety Report 20289252 (Version 1)
Quarter: 2022Q1

REPORT INFORMATION
  Report Type: Spontaneous
  Country: US (occurrence: US)
  Receive Date: 20220104
  Receipt Date: 20220104
  Transmission Date: 20220424
  Serious: No
  Sender: FDA-Public Use
  Company Number: US-JNJFOC-20211241669

PATIENT
  Age: 91 Year
  Sex: Male

DRUGS (1)
  1. XARELTO [Suspect]
     Active Substance: RIVAROXABAN
     Indication: Coronary artery disease
     Route: 048

REACTIONS (10)
  - Pain [Unknown]
  - Asthenia [Unknown]
  - Head discomfort [Unknown]
  - Feeling abnormal [Unknown]
  - Amnesia [Unknown]
  - Product label issue [Unknown]
  - Product dose omission issue [Unknown]
  - Headache [Unknown]
  - Dizziness [Unknown]
  - Product label issue [Unknown]
